FAERS Safety Report 7068660-7 (Version None)
Quarter: 2010Q4

REPORT INFORMATION
  Report Type: 
  Country: None (occurrence: None)
  Receive Date: 20101028
  Receipt Date: 20101026
  Transmission Date: 20110411
  Serious: Yes (Other)
  Sender: FDA-Public Use
  Company Number: US-BRISTOL-MYERS SQUIBB COMPANY-15262363

PATIENT
  Age: 15 Year
  Sex: Male

DRUGS (2)
  1. ABILIFY [Suspect]
     Indication: BIPOLAR DISORDER
     Dosage: INTERRUPTED FROM DEC08 TO JUN09 AND RESTARTED ON JUL09
     Route: 048
     Dates: start: 20070701
  2. LITHIUM [Concomitant]

REACTIONS (1)
  - HEPATIC STEATOSIS [None]
